FAERS Safety Report 23896476 (Version 2)
Quarter: 2024Q2

REPORT INFORMATION
  Report Type: Spontaneous
  Country: BR (occurrence: BR)
  Receive Date: 20240524
  Receipt Date: 20240526
  Transmission Date: 20240715
  Serious: Yes (Other)
  Sender: FDA-Public Use
  Company Number: BR-JNJFOC-20240554483

PATIENT
  Age: 57 Year
  Sex: Male
  Weight: 86 kg

DRUGS (3)
  1. REMICADE [Suspect]
     Active Substance: INFLIXIMAB
     Indication: Crohn^s disease
     Route: 041
  2. MESALAMINE [Concomitant]
     Active Substance: MESALAMINE
  3. AZATHIOPRINE [Concomitant]
     Active Substance: AZATHIOPRINE

REACTIONS (4)
  - Colonic fistula [Recovered/Resolved]
  - Crohn^s disease [Recovered/Resolved]
  - Tuberculosis [Unknown]
  - Adverse event [Unknown]

NARRATIVE: CASE EVENT DATE: 20221101
